FAERS Safety Report 4855415-4 (Version None)
Quarter: 2005Q4

REPORT INFORMATION
  Report Type: 
  Country: None (occurrence: None)
  Receive Date: 20051125
  Receipt Date: 20050707
  Transmission Date: 20060501
  Serious: Yes (Life-Threatening, Other)
  Sender: FDA-Public Use
  Company Number: US-JNJFOC-20050302537

PATIENT
  Age: 69 Year
  Sex: Female
  Weight: 69.4003 kg

DRUGS (1)
  1. LEVAQUIN [Suspect]
     Indication: CYSTITIS
     Dosage: 500 MG, 1 IN 1 DAY
     Dates: start: 20050302, end: 20050302

REACTIONS (1)
  - ANAPHYLACTIC REACTION [None]
